FAERS Safety Report 5088385-7 (Version None)
Quarter: 2006Q3

REPORT INFORMATION
  Report Type: 
  Country: None (occurrence: None)
  Receive Date: 20060821
  Receipt Date: 20060503
  Transmission Date: 20061208
  Serious: Yes (Hospitalization)
  Sender: FDA-Public Use
  Company Number: 2006BI006460

PATIENT
  Age: 51 Year
  Sex: Male
  Weight: 92.9874 kg

DRUGS (5)
  1. NATALIZUMAB [Suspect]
     Indication: MULTIPLE SCLEROSIS
     Dosage: IV
     Route: 042
     Dates: start: 20021101, end: 20030101
  2. TRAZODONE HCL [Concomitant]
  3. PROVIGIL [Concomitant]
  4. VITAMIN CAP [Concomitant]
  5. SOLU-MEDROL [Concomitant]

REACTIONS (5)
  - AMNESIA [None]
  - ATRIAL FIBRILLATION [None]
  - COGNITIVE DISORDER [None]
  - HYPERHIDROSIS [None]
  - MALAISE [None]
